FAERS Safety Report 24878605 (Version 3)
Quarter: 2025Q2

REPORT INFORMATION
  Report Type: Spontaneous
  Country: CA (occurrence: CA)
  Receive Date: 20250123
  Receipt Date: 20250425
  Transmission Date: 20250717
  Serious: Yes (Hospitalization, Other)
  Sender: PFIZER
  Company Number: CA-PFIZER INC-202500011450

PATIENT
  Age: 27 Year
  Sex: Male

DRUGS (2)
  1. ABRILADA [Suspect]
     Active Substance: ADALIMUMAB-AFZB
     Indication: Colitis ulcerative
     Route: 058
     Dates: start: 20241015
  2. ABRILADA [Suspect]
     Active Substance: ADALIMUMAB-AFZB
     Route: 058
     Dates: start: 20250103

REACTIONS (5)
  - Perineal infection [Unknown]
  - Sepsis [Unknown]
  - Rectal abscess [Unknown]
  - Anastomotic leak [Unknown]
  - Drug ineffective [Unknown]
